FAERS Safety Report 25307447 (Version 1)
Quarter: 2025Q2

REPORT INFORMATION
  Report Type: Spontaneous
  Country: CN (occurrence: CN)
  Receive Date: 20250513
  Receipt Date: 20250513
  Transmission Date: 20250717
  Serious: Yes (Other)
  Sender: NOVARTIS
  Company Number: CN-002147023-NVSC2025CN074737

PATIENT
  Age: 94 Year
  Sex: Male
  Weight: 46 kg

DRUGS (8)
  1. ENTRESTO [Suspect]
     Active Substance: SACUBITRIL\VALSARTAN
     Indication: Arteriosclerosis coronary artery
     Dosage: 50 MG, BID
     Route: 048
     Dates: start: 20250426, end: 20250426
  2. ENTRESTO [Suspect]
     Active Substance: SACUBITRIL\VALSARTAN
     Indication: Hypertension
  3. METOPROLOL SUCCINATE [Suspect]
     Active Substance: METOPROLOL SUCCINATE
     Indication: Arteriosclerosis coronary artery
     Dosage: 23.75 MG, QD ( SUSTAINED-RELEASE TABLETS)
     Route: 048
     Dates: start: 20250426, end: 20250426
  4. METOPROLOL SUCCINATE [Suspect]
     Active Substance: METOPROLOL SUCCINATE
     Indication: Hypertension
  5. SPIRONOLACTONE [Suspect]
     Active Substance: SPIRONOLACTONE
     Indication: Arteriosclerosis coronary artery
     Dosage: 20 MG, QD
     Route: 048
     Dates: start: 20250426, end: 20250426
  6. SPIRONOLACTONE [Suspect]
     Active Substance: SPIRONOLACTONE
     Indication: Hypertension
  7. DAPAGLIFLOZIN [Suspect]
     Active Substance: DAPAGLIFLOZIN
     Indication: Arteriosclerosis coronary artery
     Dosage: 10 MG, QD
     Route: 048
     Dates: start: 20250426, end: 20250426
  8. DAPAGLIFLOZIN [Suspect]
     Active Substance: DAPAGLIFLOZIN
     Indication: Hypertension

REACTIONS (5)
  - Hypotension [Recovering/Resolving]
  - Bradycardia [Recovering/Resolving]
  - Mental fatigue [Recovering/Resolving]
  - Speech disorder [Unknown]
  - Blood pressure abnormal [Unknown]

NARRATIVE: CASE EVENT DATE: 20250426
